FAERS Safety Report 23338597 (Version 1)
Quarter: 2023Q4

REPORT INFORMATION
  Report Type: Spontaneous
  Country: CZ (occurrence: CZ)
  Receive Date: 20231226
  Receipt Date: 20231226
  Transmission Date: 20240110
  Serious: Yes (Other)
  Sender: FDA-Public Use
  Company Number: CZ-AMGEN-CZESP2023227118

PATIENT
  Age: 55 Year
  Sex: Female
  Weight: 67 kg

DRUGS (9)
  1. XGEVA [Suspect]
     Active Substance: DENOSUMAB
     Indication: Prophylaxis
     Dosage: 120 MILLIGRAM, Q4WK (ADMINISTERED 3 TIMES IN TOTAL, AT 4-WEEK INTERVALS, THEN TREATMENT DISCONTINUED
     Route: 058
     Dates: start: 20230713, end: 20230929
  2. AMOXICILLIN\CLAVULANATE POTASSIUM [Concomitant]
     Active Substance: AMOXICILLIN\CLAVULANATE POTASSIUM
     Dosage: UNK
     Route: 048
  3. QUETIAPINE [Concomitant]
     Active Substance: QUETIAPINE
     Dosage: 25 MILLIGRAM, QD (0-0-1)
     Route: 048
  4. KEYTRUDA [Concomitant]
     Active Substance: PEMBROLIZUMAB
     Indication: Immunochemotherapy
     Dosage: CISPLATINA+PEMETREXED+PEMBROLIZUMAB SINCE 13.07.2023, ADMINISTRATED 6 CYCLES
     Route: 040
     Dates: start: 20230713
  5. ESCITALOPRAM OXALATE [Concomitant]
     Active Substance: ESCITALOPRAM OXALATE
     Dosage: 10 MILLIGRAM, QD (1-0-0)
     Route: 048
  6. TRAZODONE HYDROCHLORIDE [Concomitant]
     Active Substance: TRAZODONE HYDROCHLORIDE
     Dosage: 150 MILLIGRAM, QD (1-0-0)
     Route: 048
  7. PEMETREXED [Concomitant]
     Active Substance: PEMETREXED
     Indication: Immunochemotherapy
     Dosage: CISPLATINA+PEMETREXED+PEMBROLIZUMAB SINCE 13.07.2023, ADMINISTRATED 6 CYCLES
     Route: 040
     Dates: start: 20230713
  8. CISPLATIN [Concomitant]
     Active Substance: CISPLATIN
     Indication: Immunochemotherapy
     Dosage: CISPLATINA+PEMETREXED+PEMBROLIZUMAB SINCE 13.07.2023, ADMINISTRATED 6 CYCLES
     Route: 040
     Dates: start: 20230713
  9. FOLIC ACID [Concomitant]
     Active Substance: FOLIC ACID
     Dosage: 1-0-0
     Route: 048

REACTIONS (1)
  - Periodontitis [Recovered/Resolved]

NARRATIVE: CASE EVENT DATE: 20231028
